FAERS Safety Report 6517223-8 (Version None)
Quarter: 2009Q4

REPORT INFORMATION
  Report Type: 
  Country: None (occurrence: None)
  Receive Date: 20091223
  Receipt Date: 20091214
  Transmission Date: 20100525
  Serious: Yes (Disabling, Other)
  Sender: FDA-Public Use
  Company Number: FR-ABBOTT-09P-056-0565418-00

PATIENT
  Sex: Female

DRUGS (7)
  1. ENANTONE LP 11.25 MG PREP INJECTION [Suspect]
     Indication: ENDOMETRIOSIS
     Route: 050
     Dates: start: 20080926, end: 20081222
  2. LUTENYL [Concomitant]
     Indication: ENDOMETRIOSIS
     Dates: start: 20080926
  3. ANTADYS [Concomitant]
     Indication: ENDOMETRIOSIS
     Dates: start: 20080926
  4. MOTILIUM [Concomitant]
     Indication: ENDOMETRIOSIS
     Dates: start: 20080926
  5. OGASTORO [Concomitant]
     Indication: INTESTINAL FUNCTIONAL DISORDER
     Dates: start: 20060726
  6. ESTREVA [Concomitant]
     Indication: ENDOMETRIOSIS
     Route: 061
  7. TOPALGIC [Concomitant]
     Indication: INTESTINAL FUNCTIONAL DISORDER
     Route: 048
     Dates: start: 20060731

REACTIONS (33)
  - ABDOMINAL PAIN [None]
  - ACNE [None]
  - ANXIETY [None]
  - ARTHRALGIA [None]
  - ASTHENOPIA [None]
  - BLOOD PRESSURE DECREASED [None]
  - BREAST ATROPHY [None]
  - CHEST PAIN [None]
  - CHILLS [None]
  - COLD SWEAT [None]
  - DIARRHOEA [None]
  - DIZZINESS [None]
  - DYSPHAGIA [None]
  - ENDOMETRIOSIS [None]
  - FATIGUE [None]
  - GENERAL PHYSICAL HEALTH DETERIORATION [None]
  - HEADACHE [None]
  - HOT FLUSH [None]
  - HYPERHIDROSIS [None]
  - HYPOAESTHESIA [None]
  - INSOMNIA [None]
  - LETHARGY [None]
  - MALAISE [None]
  - MOOD SWINGS [None]
  - MUSCULOSKELETAL STIFFNESS [None]
  - MYALGIA [None]
  - NAUSEA [None]
  - NERVOUSNESS [None]
  - PALPITATIONS [None]
  - PARAESTHESIA [None]
  - PAROSMIA [None]
  - TACHYCARDIA [None]
  - WEIGHT DECREASED [None]
